FAERS Safety Report 7125181-0 (Version None)
Quarter: 2010Q4

REPORT INFORMATION
  Report Type: 
  Country: None (occurrence: None)
  Receive Date: 20101129
  Receipt Date: 20101119
  Transmission Date: 20110411
  Serious: Yes (Life-Threatening)
  Sender: FDA-Public Use
  Company Number: AT-ASTRAZENECA-2010SE55139

PATIENT
  Age: 49 Year
  Sex: Female

DRUGS (11)
  1. QUETIAPINE [Suspect]
     Indication: ANXIETY
     Dosage: LONG TERM
     Route: 048
  2. QUETIAPINE [Interacting]
     Indication: DEPRESSION
     Dosage: LONG TERM
     Route: 048
  3. QUETIAPINE [Interacting]
     Route: 048
  4. QUETIAPINE [Interacting]
     Route: 048
  5. FENTANYL [Interacting]
     Indication: ANAESTHESIA
  6. PAROXETINE HCL [Interacting]
     Indication: ANXIETY
     Dosage: LONG TERM
  7. PAROXETINE HCL [Interacting]
     Indication: DEPRESSION
     Dosage: LONG TERM
  8. PROPOFOL [Concomitant]
     Indication: ANAESTHESIA
  9. ROCURONIUM BROMIDE [Concomitant]
     Indication: ANAESTHESIA
  10. MIDAZOLAM [Concomitant]
     Indication: ANAESTHESIA
  11. SEVOFLURANE [Concomitant]
     Indication: ANAESTHESIA

REACTIONS (2)
  - DRUG INTERACTION [None]
  - SEROTONIN SYNDROME [None]
